FAERS Safety Report 9948900 (Version 2)
Quarter: 2014Q3

REPORT INFORMATION
  Report Type: Spontaneous
  Country: JP (occurrence: JP)
  Receive Date: 20140304
  Receipt Date: 20140917
  Transmission Date: 20150326
  Serious: Yes (Other)
  Sender: FDA-Public Use
  Company Number: JP-MERCK-1403JPN000299

PATIENT
  Age: 53 Year
  Sex: Male

DRUGS (5)
  1. URINORM [Concomitant]
     Active Substance: BENZBROMARONE
     Dosage: UNK
     Dates: start: 20040831
  2. URALYT U [Concomitant]
     Dosage: UNK
     Dates: start: 20040831
  3. GLACTIV [Suspect]
     Active Substance: SITAGLIPTIN
     Indication: TYPE 2 DIABETES MELLITUS
     Dosage: 50 MG ONCE A DAY
     Route: 048
     Dates: start: 20140201, end: 20140220
  4. AMARYL [Concomitant]
     Active Substance: GLIMEPIRIDE
     Dosage: UNK
     Dates: end: 20140131
  5. AMARYL [Concomitant]
     Active Substance: GLIMEPIRIDE
     Dosage: UNK
     Dates: start: 20140201

REACTIONS (3)
  - Alanine aminotransferase increased [Recovered/Resolved]
  - Blood creatine phosphokinase increased [Recovered/Resolved]
  - Aspartate aminotransferase increased [Recovered/Resolved]

NARRATIVE: CASE EVENT DATE: 20140218
